FAERS Safety Report 8826156 (Version 1)
Quarter: 2012Q4

REPORT INFORMATION
  Report Type: 
  Country: AR (occurrence: AR)
  Receive Date: 20121005
  Receipt Date: 20121005
  Transmission Date: 20130627
  Serious: Yes (Other)
  Sender: FDA-Public Use
  Company Number: AR-ROCHE-1139634

PATIENT
  Age: 83 None
  Sex: Female

DRUGS (8)
  1. LUCENTIS [Suspect]
     Indication: MACULOPATHY
     Route: 050
     Dates: start: 2009
  2. LUCENTIS [Suspect]
     Route: 050
     Dates: start: 2009
  3. LUCENTIS [Suspect]
     Route: 050
     Dates: start: 2009
  4. LUCENTIS [Suspect]
     Route: 050
     Dates: start: 2011
  5. LUCENTIS [Suspect]
     Route: 050
     Dates: start: 2011
  6. LUCENTIS [Suspect]
     Route: 050
  7. LUCENTIS [Suspect]
     Route: 050
  8. LUCENTIS [Suspect]
     Route: 050
     Dates: start: 20120524

REACTIONS (3)
  - Maculopathy [Not Recovered/Not Resolved]
  - Vision blurred [Not Recovered/Not Resolved]
  - Drug ineffective [Unknown]
